FAERS Safety Report 8724194 (Version 2)
Quarter: 2012Q4

REPORT INFORMATION
  Report Type: 
  Country: PL (occurrence: PL)
  Receive Date: 20120815
  Receipt Date: 20120904
  Transmission Date: 20130627
  Serious: Yes (Other)
  Sender: FDA-Public Use
  Company Number: PL-PFIZER INC-2012197211

PATIENT

DRUGS (2)
  1. CORDARONE [Suspect]
     Indication: FOETAL EXPOSURE TIMING UNSPECIFIED
     Dosage: 10 DF, UNK
     Route: 064
  2. NIFEDIPINE [Suspect]
     Indication: FOETAL EXPOSURE TIMING UNSPECIFIED
     Dosage: UNK
     Route: 064

REACTIONS (6)
  - Drug dispensing error [Unknown]
  - Maternal exposure timing unspecified [Unknown]
  - Foetal growth restriction [Unknown]
  - Congenital infection [Unknown]
  - Hypomagnesaemia [Unknown]
  - Temperature regulation disorder [Unknown]
